FAERS Safety Report 21991449 (Version 2)
Quarter: 2023Q1

REPORT INFORMATION
  Report Type: Spontaneous
  Country: US (occurrence: US)
  Receive Date: 20230214
  Receipt Date: 20230215
  Transmission Date: 20230418
  Serious: No
  Sender: FDA-Public Use
  Company Number: US-PFIZER INC-PV202200119387

PATIENT
  Age: 52 Year
  Sex: Female

DRUGS (10)
  1. NURTEC ODT [Suspect]
     Active Substance: RIMEGEPANT SULFATE
     Indication: Migraine
     Dosage: UNK, ALTERNATE DAY
     Dates: start: 2022
  2. NURTEC ODT [Suspect]
     Active Substance: RIMEGEPANT SULFATE
     Dosage: 75 MG, ALTERNATE DAY
     Route: 048
     Dates: start: 202210, end: 202212
  3. ALLEGRA [Concomitant]
     Active Substance: FEXOFENADINE HYDROCHLORIDE
     Dosage: UNK
  4. BUPRENORPHINE [Concomitant]
     Active Substance: BUPRENORPHINE
     Dosage: UNK
  5. CELEBREX [Concomitant]
     Active Substance: CELECOXIB
     Dosage: UNK
  6. CLONIDINE [Concomitant]
     Active Substance: CLONIDINE
     Dosage: UNK
  7. DESVENLAFAXINE [Concomitant]
     Active Substance: DESVENLAFAXINE
     Dosage: UNK
  8. HYDROCORTISONE [Concomitant]
     Active Substance: HYDROCORTISONE
     Dosage: UNK
  9. IRBESARTAN [Concomitant]
     Active Substance: IRBESARTAN
     Dosage: UNK
  10. LEVOTHYROXINE [Concomitant]
     Active Substance: LEVOTHYROXINE
     Dosage: UNK

REACTIONS (1)
  - Drug ineffective [Unknown]

NARRATIVE: CASE EVENT DATE: 20220101
